FAERS Safety Report 8059771-8 (Version None)
Quarter: 2012Q1

REPORT INFORMATION
  Report Type: 
  Country: None (occurrence: None)
  Receive Date: 20120120
  Receipt Date: 20120120
  Transmission Date: 20120608
  Serious: Yes (Death)
  Sender: FDA-Public Use
  Company Number: PHHY2012AU001116

PATIENT
  Sex: Female

DRUGS (5)
  1. WARFARIN SODIUM [Concomitant]
     Dosage: UNK UKN, UNK
  2. ZOLEDRONOC ACID [Suspect]
     Dosage: 5 MG, UNK
     Route: 042
     Dates: start: 20110127
  3. PERINDOPRIL ERBUMINE [Concomitant]
     Dosage: UNK UKN, UNK
  4. DIGOXIN [Concomitant]
     Dosage: UNK UKN, UNK
  5. CALCIUM WITH VITAMIN D [Concomitant]
     Dosage: UNK UKN, UNK

REACTIONS (2)
  - LOSS OF CONSCIOUSNESS [None]
  - CEREBROVASCULAR ACCIDENT [None]
